FAERS Safety Report 8026395-8 (Version None)
Quarter: 2012Q1

REPORT INFORMATION
  Report Type: 
  Country: None (occurrence: None)
  Receive Date: 20120105
  Receipt Date: 20120104
  Transmission Date: 20120608
  Serious: Yes (Hospitalization, Other)
  Sender: FDA-Public Use
  Company Number: US-ABBOTT-11P-163-0869311-00

PATIENT
  Sex: Male
  Weight: 74.91 kg

DRUGS (23)
  1. VALIUM [Concomitant]
     Indication: PRODUCT USED FOR UNKNOWN INDICATION
  2. IRON [Concomitant]
     Indication: PRODUCT USED FOR UNKNOWN INDICATION
  3. VITAMIN D [Concomitant]
     Indication: PRODUCT USED FOR UNKNOWN INDICATION
  4. LISINOPRIL [Concomitant]
     Indication: PRODUCT USED FOR UNKNOWN INDICATION
  5. PRAVASTATIN [Concomitant]
     Indication: PRODUCT USED FOR UNKNOWN INDICATION
  6. HUMIRA [Suspect]
     Indication: ANKYLOSING SPONDYLITIS
     Dates: start: 20110512
  7. HUMIRA [Suspect]
     Dates: start: 20111215
  8. PREDNISONE TAB [Concomitant]
  9. PLAQUENIL [Concomitant]
     Indication: ARTHRITIS
  10. HYTRIN [Concomitant]
     Indication: PRODUCT USED FOR UNKNOWN INDICATION
  11. MULTI-VITAMINS [Concomitant]
     Indication: PRODUCT USED FOR UNKNOWN INDICATION
  12. ASPIRIN [Concomitant]
     Indication: PRODUCT USED FOR UNKNOWN INDICATION
  13. ACETAMINOPHEN [Concomitant]
     Indication: PRODUCT USED FOR UNKNOWN INDICATION
  14. PROCARDIA [Concomitant]
     Indication: CHEST PAIN
  15. FUROSEMIDE [Concomitant]
     Indication: PRODUCT USED FOR UNKNOWN INDICATION
  16. NEXIUM [Concomitant]
     Indication: PRODUCT USED FOR UNKNOWN INDICATION
  17. MECLIZINE [Concomitant]
     Indication: PRODUCT USED FOR UNKNOWN INDICATION
  18. STATIN [Concomitant]
     Indication: PRODUCT USED FOR UNKNOWN INDICATION
  19. ELAVIL [Concomitant]
     Indication: PRODUCT USED FOR UNKNOWN INDICATION
  20. TRAMADOL HCL [Concomitant]
     Indication: PRODUCT USED FOR UNKNOWN INDICATION
  21. TOPROL-XL [Concomitant]
     Indication: BLOOD PRESSURE
     Dates: start: 20111001
  22. PREDNISONE TAB [Concomitant]
     Indication: ARTHRITIS
  23. PROCARDIA [Concomitant]
     Indication: HYPERTENSION

REACTIONS (21)
  - MYOCARDIAL ISCHAEMIA [None]
  - HYPERHIDROSIS [None]
  - OSTEOARTHRITIS [None]
  - MYOCARDIAL INFARCTION [None]
  - ARTHRITIS [None]
  - CHEST PAIN [None]
  - OEDEMA PERIPHERAL [None]
  - SWELLING FACE [None]
  - DIZZINESS [None]
  - DIAPHRAGMATIC DISORDER [None]
  - ERYTHEMA [None]
  - GASTRIC DISORDER [None]
  - MUSCULOSKELETAL PAIN [None]
  - OEDEMA [None]
  - CARDIAC STRESS TEST ABNORMAL [None]
  - GASTROINTESTINAL DISORDER [None]
  - DYSPNOEA [None]
  - DECREASED ACTIVITY [None]
  - HYPERTENSION [None]
  - VENTRICULAR HYPOKINESIA [None]
  - THROMBOSIS [None]
